FAERS Safety Report 4338444-9 (Version None)
Quarter: 2004Q2

REPORT INFORMATION
  Report Type: 
  Country: None (occurrence: None)
  Receive Date: 20040409
  Receipt Date: 20040329
  Transmission Date: 20050107
  Serious: Yes (Congenital Anomaly)
  Sender: FDA-Public Use
  Company Number: 04P-163-0252678-00

PATIENT
  Age: 1 Day
  Sex: Female

DRUGS (1)
  1. KALETRA [Suspect]

REACTIONS (6)
  - CARDIAC MURMUR [None]
  - EAR MALFORMATION [None]
  - FACIAL DYSMORPHISM [None]
  - LIMB MALFORMATION [None]
  - MATERNAL DRUGS AFFECTING FOETUS [None]
  - POLYDACTYLY [None]
